FAERS Safety Report 6187389-0 (Version None)
Quarter: 2009Q2

REPORT INFORMATION
  Report Type: 
  Country: None (occurrence: None)
  Receive Date: 20090512
  Receipt Date: 20090508
  Transmission Date: 20091009
  Serious: Yes (Death)
  Sender: FDA-Public Use
  Company Number: B0573313A

PATIENT
  Age: 49 Year
  Sex: Male

DRUGS (6)
  1. LAMIVUDINE AND ZIDOVUDINE [Suspect]
     Indication: PROPHYLAXIS AGAINST HIV INFECTION
     Dosage: 1TAB TWICE PER DAY
     Route: 048
     Dates: start: 20090317, end: 20090407
  2. EFAVIRENZ [Suspect]
     Indication: PROPHYLAXIS AGAINST HIV INFECTION
     Dosage: 600MG AT NIGHT
     Dates: start: 20090317, end: 20090407
  3. RIFAMPICIN [Concomitant]
     Dosage: 450MG PER DAY
  4. ISONIAZID [Concomitant]
     Dosage: 300MG PER DAY
  5. PYRAZINAMIDE [Concomitant]
     Dosage: 1000MG PER DAY
  6. ETHAMBUTOL HCL [Concomitant]
     Dosage: 800MG PER DAY

REACTIONS (2)
  - DISSEMINATED TUBERCULOSIS [None]
  - DYSPNOEA [None]
